FAERS Safety Report 7334488-3 (Version None)
Quarter: 2011Q1

REPORT INFORMATION
  Report Type: 
  Country: None (occurrence: None)
  Receive Date: 20110307
  Receipt Date: 20110214
  Transmission Date: 20110831
  Serious: No
  Sender: FDA-Public Use
  Company Number: US-B.I. PHARMACEUTICALS,INC./RIDGEFIELD-2011-BP-05442BP

PATIENT
  Age: 66 Year
  Sex: Male

DRUGS (8)
  1. ASPIRIN [Concomitant]
     Dosage: 81 MG
  2. PLAVIX [Concomitant]
     Indication: BLOOD DISORDER
     Dosage: 75 MG
  3. MULTI-VITAMIN [Concomitant]
  4. METROPOLOL [Concomitant]
     Indication: CARDIAC DISORDER
     Dosage: 100 MG
  5. LISINOPRIL [Concomitant]
     Indication: HYPERTENSION
     Dosage: 10 MG
  6. ALLOPURINOL [Concomitant]
     Indication: GOUT
     Dosage: 200 MG
  7. PRADAXA [Suspect]
     Indication: ATRIAL FIBRILLATION
     Dosage: 300 MG
     Route: 048
     Dates: start: 20110209
  8. FUROSEMIDE [Concomitant]
     Indication: POLYURIA
     Dosage: 40 MG

REACTIONS (1)
  - HEADACHE [None]
